FAERS Safety Report 5350475-9 (Version None)
Quarter: 2007Q2

REPORT INFORMATION
  Report Type: 
  Country: None (occurrence: None)
  Receive Date: 20070608
  Receipt Date: 20070531
  Transmission Date: 20071010
  Serious: Yes (Disabling)
  Sender: FDA-Public Use
  Company Number: PHBS2007CN09131

PATIENT
  Age: 68 Year
  Sex: Male
  Weight: 55 kg

DRUGS (1)
  1. LOTENSIN [Suspect]
     Dosage: 10 MG, QD
     Route: 048
     Dates: start: 19090301, end: 20070531

REACTIONS (2)
  - GAIT DISTURBANCE [None]
  - MUSCULOSKELETAL STIFFNESS [None]
